FAERS Safety Report 14633091 (Version 1)
Quarter: 2018Q1

REPORT INFORMATION
  Report Type: Spontaneous
  Country: FR (occurrence: FR)
  Receive Date: 20180313
  Receipt Date: 20180313
  Transmission Date: 20180509
  Serious: Yes (Other)
  Sender: FDA-Public Use
  Company Number: FR-MERCK KGAA-2043657

PATIENT
  Sex: Female

DRUGS (1)
  1. NOVOTHYROX [Suspect]
     Active Substance: LEVOTHYROXINE SODIUM
     Indication: AUTOIMMUNE THYROIDITIS
     Dates: start: 201708

REACTIONS (13)
  - Fatigue [None]
  - Social avoidant behaviour [None]
  - Palpitations [None]
  - Alopecia [None]
  - Depression [None]
  - Loss of personal independence in daily activities [None]
  - Headache [None]
  - Dry skin [None]
  - Muscle spasms [None]
  - Personal relationship issue [None]
  - Insomnia [None]
  - Impaired work ability [None]
  - Disturbance in attention [None]
